FAERS Safety Report 5021221-3 (Version None)
Quarter: 2006Q2

REPORT INFORMATION
  Report Type: 
  Country: None (occurrence: None)
  Receive Date: 20060608
  Receipt Date: 20060320
  Transmission Date: 20061013
  Serious: Yes (Hospitalization)
  Sender: FDA-Public Use
  Company Number: SE-ROCHE-441056

PATIENT
  Age: 57 Year
  Sex: Male

DRUGS (8)
  1. PEG-INTERFERON ALFA 2A (RO 25-8310) [Suspect]
     Route: 042
     Dates: start: 20050524, end: 20050809
  2. RIBAVIRIN [Suspect]
     Route: 048
     Dates: start: 20050524, end: 20050809
  3. ALVEDON [Concomitant]
     Dosage: DRUG REPORTED AS: ALVEDON FORTE.
  4. DEXOFEN [Concomitant]
  5. TROMBYL [Concomitant]
  6. CITALOPRAM HYDROBROMIDE [Concomitant]
  7. SIMVASTATIN [Concomitant]
  8. BISOPROLOL [Concomitant]

REACTIONS (2)
  - CEREBRAL INFARCTION [None]
  - LACUNAR INFARCTION [None]
